FAERS Safety Report 8211516-4 (Version None)
Quarter: 2012Q1

REPORT INFORMATION
  Report Type: 
  Country: None (occurrence: None)
  Receive Date: 20120315
  Receipt Date: 20120308
  Transmission Date: 20120608
  Serious: Yes (Death, Life-Threatening, Other)
  Sender: FDA-Public Use
  Company Number: DE-ROXANE LABORATORIES, INC.-2012-RO-00839RO

PATIENT
  Age: 69 Year
  Sex: Male

DRUGS (10)
  1. CYCLOSPORINE [Suspect]
     Indication: PROPHYLAXIS AGAINST GRAFT VERSUS HOST DISEASE
  2. FLUCONAZOLE [Suspect]
     Indication: ANTIFUNGAL PROPHYLAXIS
  3. CYTARABINE [Suspect]
     Indication: CHEMOTHERAPY
     Route: 042
  4. ACYCLOVIR [Suspect]
     Indication: ANTIVIRAL PROPHYLAXIS
  5. MYCOPHENOLATE MOFETIL [Suspect]
     Indication: PROPHYLAXIS AGAINST GRAFT VERSUS HOST DISEASE
  6. METRONIDAZOLE [Suspect]
     Indication: ANTIBIOTIC PROPHYLAXIS
  7. CLOFARABINE [Suspect]
     Indication: CHEMOTHERAPY
     Route: 042
  8. LEVOFLOXACIN [Suspect]
     Indication: ANTIBIOTIC PROPHYLAXIS
  9. RABBIT ANTITHYMOCYTE GLOBULIN [Suspect]
     Indication: BONE MARROW CONDITIONING REGIMEN
  10. CYCLOPHOSPHAMIDE [Suspect]
     Indication: BONE MARROW CONDITIONING REGIMEN

REACTIONS (9)
  - DEATH [None]
  - PALMAR-PLANTAR ERYTHRODYSAESTHESIA SYNDROME [None]
  - BLOOD BILIRUBIN INCREASED [None]
  - MYOCARDIAL INFARCTION [None]
  - HEPATOTOXICITY [None]
  - ATRIAL FIBRILLATION [None]
  - SEPSIS [None]
  - NAUSEA [None]
  - ATRIAL FLUTTER [None]
